FAERS Safety Report 4322565-0 (Version None)
Quarter: 2004Q1

REPORT INFORMATION
  Report Type: 
  Country: None (occurrence: None)
  Receive Date: 20040322
  Receipt Date: 20040322
  Transmission Date: 20041129
  Serious: Yes (Other)
  Sender: FDA-Public Use
  Company Number: None

PATIENT
  Age: 56 Year
  Sex: Male
  Weight: 107.5 kg

DRUGS (14)
  1. OMEPRAZOLE [Suspect]
  2. SIMVASTATIN [Concomitant]
  3. ZOLPIDEM TARTRATE [Concomitant]
  4. LANSOPRAZOLE [Concomitant]
  5. POUCH, OSTOMY H # 3803 [Concomitant]
  6. PAROXETINE HCL [Concomitant]
  7. GABAPENTIN [Concomitant]
  8. BARRIER , CENTERPOINTLOCK H# 3738 [Concomitant]
  9. BELT, OSTOMY, LARGE H #7299 [Concomitant]
  10. FACIAL CLEANSING BAR [Concomitant]
  11. MELOXICAM [Concomitant]
  12. PASTE, ADAPT H#79300 [Concomitant]
  13. OMEPRAZOLE [Concomitant]
  14. FLUOXETINE HCL [Concomitant]

REACTIONS (1)
  - DIARRHOEA [None]
